FAERS Safety Report 9057785 (Version 1)
Quarter: 2013Q1

REPORT INFORMATION
  Report Type: Spontaneous
  Country: US (occurrence: None)
  Receive Date: 20130204
  Receipt Date: 20130204
  Transmission Date: 20140127
  Serious: Yes (Hospitalization)
  Sender: FDA-Public Use
  Company Number: None

PATIENT
  Sex: Female
  Weight: 76.2 kg

DRUGS (3)
  1. PREDNISONE [Suspect]
     Dates: start: 20130122
  2. CYANIDE ANTIDOTE PACKAGE [Suspect]
     Dates: start: 20130122
  3. CYANOCOBALAMIN [Suspect]

REACTIONS (2)
  - Throat irritation [None]
  - Anaphylactic reaction [None]
